FAERS Safety Report 25388856 (Version 2)
Quarter: 2025Q2

REPORT INFORMATION
  Report Type: Report from Study
  Country: CA (occurrence: CA)
  Receive Date: 20250603
  Receipt Date: 20250613
  Transmission Date: 20250717
  Serious: Yes (Other)
  Sender: CELLTRION
  Company Number: CA-CELLTRION INC.-2025CA016903

PATIENT

DRUGS (1)
  1. USTEKINUMAB [Suspect]
     Active Substance: USTEKINUMAB
     Indication: Psoriasis
     Route: 058
     Dates: start: 20250429

REACTIONS (8)
  - Insomnia [Unknown]
  - Paraesthesia [Unknown]
  - Muscle spasms [Unknown]
  - Impaired healing [Unknown]
  - Chromaturia [Unknown]
  - Renal pain [Unknown]
  - Urine odour abnormal [Unknown]
  - Fatigue [Unknown]

NARRATIVE: CASE EVENT DATE: 20250430
